FAERS Safety Report 8812263 (Version 1)
Quarter: 2012Q4

REPORT INFORMATION
  Report Type: 
  Country: US (occurrence: US)
  Receive Date: 20120927
  Receipt Date: 20120927
  Transmission Date: 20130627
  Serious: Yes (Death, Other)
  Sender: FDA-Public Use
  Company Number: US-ROCHE-1122924

PATIENT
  Sex: Male

DRUGS (12)
  1. AVASTIN [Suspect]
     Indication: COLON CANCER
     Route: 065
  2. AVASTIN [Suspect]
     Indication: COLORECTAL CANCER METASTATIC
  3. LEUCOVORIN [Suspect]
     Indication: COLON CANCER
  4. LEUCOVORIN [Suspect]
     Indication: COLORECTAL CANCER METASTATIC
  5. 5-FU [Suspect]
     Indication: COLON CANCER
  6. 5-FU [Suspect]
     Indication: COLORECTAL CANCER METASTATIC
  7. OXALIPLATIN [Suspect]
     Indication: COLON CANCER
  8. OXALIPLATIN [Suspect]
     Indication: COLORECTAL CANCER METASTATIC
  9. IRINOTECAN [Suspect]
     Indication: COLON CANCER
  10. IRINOTECAN [Suspect]
     Indication: COLORECTAL CANCER METASTATIC
  11. ERBITUX [Suspect]
     Indication: COLON CANCER
  12. ERBITUX [Suspect]
     Indication: COLORECTAL CANCER METASTATIC

REACTIONS (2)
  - Disease progression [Fatal]
  - Neutrophil count decreased [Unknown]
